FAERS Safety Report 16817965 (Version 4)
Quarter: 2019Q4

REPORT INFORMATION
  Report Type: Report from Study
  Country: None (occurrence: US)
  Receive Date: 20190917
  Receipt Date: 20191226
  Transmission Date: 20200122
  Serious: Yes (Hospitalization, Other)
  Sender: FDA-Public Use
  Company Number: US-ABBVIE-19K-163-2884633-00

PATIENT
  Age: 55 Year
  Sex: Female
  Weight: 77.18 kg

DRUGS (6)
  1. POTASSIUM [Concomitant]
     Active Substance: POTASSIUM
     Indication: MINERAL SUPPLEMENTATION
  2. VENCLEXTA [Suspect]
     Active Substance: VENETOCLAX
     Indication: MALIGNANT LYMPHOID NEOPLASM
     Route: 048
     Dates: start: 2019
  3. OMEPRAZOLE. [Concomitant]
     Active Substance: OMEPRAZOLE
     Indication: GASTROOESOPHAGEAL REFLUX DISEASE
  4. LEVOTHYROXINE. [Concomitant]
     Active Substance: LEVOTHYROXINE
     Indication: HYPOTHYROIDISM
  5. VENCLEXTA [Suspect]
     Active Substance: VENETOCLAX
     Indication: B-CELL LYMPHOMA
     Route: 048
     Dates: start: 201801, end: 2019
  6. VENCLEXTA [Suspect]
     Active Substance: VENETOCLAX
     Indication: NON-HODGKIN^S LYMPHOMA
     Route: 048
     Dates: start: 201908, end: 20190909

REACTIONS (13)
  - White blood cell count increased [Recovered/Resolved with Sequelae]
  - Product lot number issue [Unknown]
  - Colitis [Recovered/Resolved with Sequelae]
  - Cystitis noninfective [Recovered/Resolved with Sequelae]
  - Haematochezia [Unknown]
  - Haemoglobin decreased [Recovered/Resolved]
  - Internal haemorrhage [Recovered/Resolved]
  - Off label use [Unknown]
  - Fatigue [Recovered/Resolved]
  - Blood potassium decreased [Recovered/Resolved with Sequelae]
  - Hospitalisation [Unknown]
  - Urinary tract infection [Recovered/Resolved with Sequelae]
  - Platelet count decreased [Recovered/Resolved with Sequelae]

NARRATIVE: CASE EVENT DATE: 2019
